FAERS Safety Report 7557495-4 (Version None)
Quarter: 2011Q2

REPORT INFORMATION
  Report Type: 
  Country: None (occurrence: None)
  Receive Date: 20110620
  Receipt Date: 20110616
  Transmission Date: 20111010
  Serious: Yes (Hospitalization)
  Sender: FDA-Public Use
  Company Number: GB-PFIZER INC-2011133261

PATIENT
  Age: 67 Year
  Sex: Female

DRUGS (7)
  1. DOCUSATE [Suspect]
  2. CLOZAPINE [Suspect]
     Dosage: 700 MG, UNK
     Dates: start: 20030420
  3. SENNA [Suspect]
  4. FUROSEMIDE [Suspect]
  5. AMLODIPINE BESYLATE [Suspect]
  6. CLOZAPINE [Suspect]
     Indication: SCHIZOPHRENIA
     Dosage: 350 MG, 1X/DAY
     Route: 048
     Dates: start: 19990531
  7. DIGOXIN [Suspect]

REACTIONS (2)
  - OVERDOSE [None]
  - DRUG LEVEL INCREASED [None]
